FAERS Safety Report 18536589 (Version 1)
Quarter: 2020Q4

REPORT INFORMATION
  Report Type: Spontaneous
  Country: US (occurrence: US)
  Receive Date: 20201123
  Receipt Date: 20201123
  Transmission Date: 20210114
  Serious: No
  Sender: FDA-Public Use
  Company Number: US-THE RITEDOSE CORPORATION-2020RIT000130

PATIENT

DRUGS (1)
  1. IPRATROPIUM BROMIDE AND ALBUTEROL SULFATE [Suspect]
     Active Substance: ALBUTEROL SULFATE\IPRATROPIUM BROMIDE
     Indication: PRODUCT USED FOR UNKNOWN INDICATION
     Dosage: UNK
     Route: 055
     Dates: start: 201901, end: 20200510

REACTIONS (7)
  - Capillary disorder [Not Recovered/Not Resolved]
  - Swollen tongue [Recovering/Resolving]
  - Dysphagia [Recovering/Resolving]
  - Pollakiuria [Recovering/Resolving]
  - Swelling face [Unknown]
  - Swelling of eyelid [Recovered/Resolved]
  - Pharyngeal swelling [Recovering/Resolving]

NARRATIVE: CASE EVENT DATE: 201901
